FAERS Safety Report 7940779-5 (Version None)
Quarter: 2011Q4

REPORT INFORMATION
  Report Type: 
  Country: None (occurrence: None)
  Receive Date: 20111108
  Receipt Date: 20110713
  Transmission Date: 20120403
  Serious: Yes (Other)
  Sender: FDA-Public Use
  Company Number: PHEH2010US01808

PATIENT
  Sex: Female

DRUGS (10)
  1. ZETIA [Concomitant]
  2. ISOSORBIDE (ISOSORBIDE) [Concomitant]
  3. PRAVACHOL [Concomitant]
  4. TOPROL-XL [Concomitant]
  5. ZOMETA [Suspect]
     Dosage: UNK
     Dates: start: 20040501, end: 20061001
  6. DIOVAN [Concomitant]
  7. ARIMIDEX [Concomitant]
  8. ASPIRIN [Concomitant]
  9. CALCIUM CARBONATE [Concomitant]
  10. OMEPRAZOLE [Concomitant]

REACTIONS (12)
  - MUSCLE SPASMS [None]
  - QUALITY OF LIFE DECREASED [None]
  - INJURY [None]
  - DISABILITY [None]
  - HYPERTENSION [None]
  - HYPERLIPIDAEMIA [None]
  - PAIN [None]
  - TOOTH LOSS [None]
  - STOMATITIS [None]
  - ANXIETY [None]
  - OSTEONECROSIS OF JAW [None]
  - BONE LESION [None]
